FAERS Safety Report 9219077 (Version 1)
Quarter: 2013Q2

REPORT INFORMATION
  Report Type: Spontaneous
  Country: MX (occurrence: MX)
  Receive Date: 20130409
  Receipt Date: 20130409
  Transmission Date: 20140414
  Serious: Yes (Other)
  Sender: FDA-Public Use
  Company Number: PHHY2013MX033574

PATIENT
  Age: 69 Year
  Sex: Female
  Weight: 60 kg

DRUGS (5)
  1. CO-DIOVAN [Suspect]
     Indication: HYPERTENSION
     Dosage: 1 DF (VALS 160 MG/ HCT 12.5 MG) DAILY
     Route: 048
     Dates: start: 2003
  2. CO-DIOVAN [Suspect]
     Dosage: 0.5 DF (HALF TABLET IN THE MORNING AND HALF TABLET AT NIGHT)
  3. TENORETIC [Concomitant]
     Indication: HYPERTENSION
     Dosage: 1 UKN, DAILY
     Dates: start: 200301
  4. TENORETIC [Concomitant]
     Dosage: 0.5 UNK, UNK
  5. TAFIL [Concomitant]
     Indication: SLEEP DISORDER
     Dosage: 1 UKN, UNK
     Dates: start: 200501

REACTIONS (3)
  - Diabetes mellitus [Not Recovered/Not Resolved]
  - Obesity [Not Recovered/Not Resolved]
  - Wrong technique in drug usage process [Unknown]
